FAERS Safety Report 22624318 (Version 1)
Quarter: 2023Q2

REPORT INFORMATION
  Report Type: Spontaneous
  Country: None (occurrence: GB)
  Receive Date: 20230621
  Receipt Date: 20230621
  Transmission Date: 20230721
  Serious: Yes (Other)
  Sender: FDA-Public Use
  Company Number: GB-B.Braun Medical Inc.-2142970

PATIENT
  Age: 47 Year
  Sex: Male

DRUGS (11)
  1. ACETAMINOPHEN [Suspect]
     Active Substance: ACETAMINOPHEN
  2. CLOZARIL [Suspect]
     Active Substance: CLOZAPINE
  3. HALOPERIDOL [Suspect]
     Active Substance: HALOPERIDOL
  4. LORAZEPAM [Suspect]
     Active Substance: LORAZEPAM
  5. MOVICOL [Suspect]
     Active Substance: POLYETHYLENE GLYCOL 3350\POTASSIUM CHLORIDE\SODIUM BICARBONATE\SODIUM CHLORIDE
  6. NICOTINE [Suspect]
     Active Substance: NICOTINE
  7. SENNA [Suspect]
     Active Substance: SENNA LEAF\SENNOSIDES\SENNOSIDES A AND B
  8. VALPROATE SODIUM [Suspect]
     Active Substance: VALPROATE SODIUM
  9. ZOPICLONE [Suspect]
     Active Substance: ZOPICLONE
  10. LITHIUM CARBONATE [Suspect]
     Active Substance: LITHIUM CARBONATE
  11. OLANZAPINE [Suspect]
     Active Substance: OLANZAPINE

REACTIONS (3)
  - Neutropenia [Unknown]
  - Treatment noncompliance [Unknown]
  - Off label use [Unknown]
